FAERS Safety Report 5801137-2 (Version None)
Quarter: 2008Q3

REPORT INFORMATION
  Report Type: 
  Country: None (occurrence: None)
  Receive Date: 20080707
  Receipt Date: 20080623
  Transmission Date: 20090109
  Serious: Yes (Other)
  Sender: FDA-Public Use
  Company Number: PHHY2008BR12049

PATIENT
  Sex: Male
  Weight: 75 kg

DRUGS (5)
  1. SLOW-K [Suspect]
     Dosage: 2 TAB IN MORNING, 2 TABS IN AFTERNOON AND 2 TABS AT NIGHT
     Route: 048
     Dates: start: 20080523
  2. FUROSEMIDE [Concomitant]
     Dosage: 1 TAB IN MORNING AND 1 TAB AT NIGHT.
  3. PREDNISONE 50MG TAB [Concomitant]
     Indication: RESPIRATORY DISORDER
     Dosage: 1 IN MORNING AND 1 IN AFTERNOON.
     Route: 048
  4. INSULIN INSULATARD NPH NORDISK [Concomitant]
     Indication: DIABETES MELLITUS
     Dosage: 30 U.I IN MORNING AND 30 U.I IN AFTERNOON.
  5. AEROFLUX [Concomitant]

REACTIONS (4)
  - HYPERGLYCAEMIA [None]
  - MUSCLE SPASMS [None]
  - TREMOR [None]
  - URINE ANALYSIS ABNORMAL [None]
